FAERS Safety Report 22044156 (Version 1)
Quarter: 2023Q1

REPORT INFORMATION
  Report Type: Spontaneous
  Country: None (occurrence: NO)
  Receive Date: 20230228
  Receipt Date: 20230228
  Transmission Date: 20230417
  Serious: Yes (Other)
  Sender: FDA-Public Use
  Company Number: NO-Therakind Limited-2138532

PATIENT
  Age: 73 Year
  Sex: Male

DRUGS (13)
  1. METHOTREXATE [Suspect]
     Active Substance: METHOTREXATE
     Indication: Diffuse large B-cell lymphoma
     Route: 065
     Dates: start: 20211101, end: 20220401
  2. BENDAMUSTINE [Suspect]
     Active Substance: BENDAMUSTINE
  3. CISPLATIN [Suspect]
     Active Substance: CISPLATIN
  4. ETOPOSIDE [Suspect]
     Active Substance: ETOPOSIDE
  5. IFOSFAMIDE [Suspect]
     Active Substance: IFOSFAMIDE
  6. DOXORUBICIN [Suspect]
     Active Substance: DOXORUBICIN
  7. CYCLOPHOSPHAMIDE [Suspect]
     Active Substance: CYCLOPHOSPHAMIDE
  8. GEMCITABINE [Suspect]
     Active Substance: GEMCITABINE
  9. DEXAMETHASONE [Suspect]
     Active Substance: DEXAMETHASONE
  10. PREDNISONE [Suspect]
     Active Substance: PREDNISONE
  11. RITUXIMAB [Suspect]
     Active Substance: RITUXIMAB
  12. POLATUZUMAB VEDOTIN [Suspect]
     Active Substance: POLATUZUMAB VEDOTIN
  13. VINCRISTINE [Suspect]
     Active Substance: VINCRISTINE

REACTIONS (2)
  - Disease progression [Unknown]
  - Product use in unapproved indication [Unknown]
